FAERS Safety Report 16293859 (Version 2)
Quarter: 2019Q2

REPORT INFORMATION
  Report Type: Spontaneous
  Country: US (occurrence: US)
  Receive Date: 20190509
  Receipt Date: 20190612
  Transmission Date: 20190711
  Serious: Yes (Other)
  Sender: FDA-Public Use
  Company Number: US-NOVOPROD-660880

PATIENT
  Age: 73 Year
  Sex: Male

DRUGS (1)
  1. NOVOLOG [Suspect]
     Active Substance: INSULIN ASPART
     Indication: TYPE 1 DIABETES MELLITUS
     Dosage: UNK
     Route: 058

REACTIONS (7)
  - Injection site haemorrhage [Unknown]
  - Eye operation [Unknown]
  - Blood glucose increased [Unknown]
  - Eye haemorrhage [Recovered/Resolved]
  - Intentional product misuse [Unknown]
  - Injection site reaction [Unknown]
  - Product contamination with body fluid [Unknown]
